FAERS Safety Report 24715507 (Version 2)
Quarter: 2025Q2

REPORT INFORMATION
  Report Type: Report from Study
  Country: US (occurrence: US)
  Receive Date: 20241210
  Receipt Date: 20250509
  Transmission Date: 20250717
  Serious: No
  Sender: AMGEN
  Company Number: US-AMGEN-USASP2024240442

PATIENT
  Age: 40 Year
  Sex: Female

DRUGS (2)
  1. TEPEZZA [Suspect]
     Active Substance: TEPROTUMUMAB-TRBW
     Indication: Endocrine ophthalmopathy
     Dosage: 1 DOSAGE FORM, Q3WK (FOR A TOTAL OF 8 INFUSIONS)
     Route: 040
     Dates: start: 20241009
  2. TEPEZZA [Suspect]
     Active Substance: TEPROTUMUMAB-TRBW
     Indication: Toxic goitre

REACTIONS (4)
  - Pain [Unknown]
  - Gait disturbance [Unknown]
  - Skin texture abnormal [Unknown]
  - Tinnitus [Unknown]
